FAERS Safety Report 20319276 (Version 1)
Quarter: 2022Q1

REPORT INFORMATION
  Report Type: Spontaneous
  Country: US (occurrence: US)
  Receive Date: 20220110
  Receipt Date: 20220110
  Transmission Date: 20220424
  Serious: No
  Sender: FDA-Public Use
  Company Number: US-PFIZER INC-2019062177

PATIENT
  Age: 53 Year
  Sex: Female
  Weight: 109 kg

DRUGS (6)
  1. LYRICA [Suspect]
     Active Substance: PREGABALIN
     Indication: Nerve injury
     Dosage: 100 MG, 3X/DAY
     Route: 048
     Dates: start: 201810
  2. LYRICA [Suspect]
     Active Substance: PREGABALIN
     Indication: Neuralgia
     Dosage: 100 MG, AS NEEDED (TAKE 1 CAPSULE BY MOUTH 3 TIMES DAILY AS NEEDED)
     Route: 048
     Dates: start: 20190424
  3. LYRICA [Suspect]
     Active Substance: PREGABALIN
     Indication: Neuritis
     Dosage: 150 MG, AS NEEDED (3 TIMES)
     Route: 048
     Dates: start: 20190628
  4. LYRICA [Suspect]
     Active Substance: PREGABALIN
     Indication: Neuralgia
     Dosage: 200 MG, 3X/DAY
     Route: 048
  5. LYRICA [Suspect]
     Active Substance: PREGABALIN
     Indication: Complex regional pain syndrome
  6. AMITRIPTYLINE [Concomitant]
     Active Substance: AMITRIPTYLINE
     Dosage: UNK

REACTIONS (2)
  - Pain [Unknown]
  - Malaise [Unknown]
